FAERS Safety Report 4889879-7 (Version None)
Quarter: 2006Q1

REPORT INFORMATION
  Report Type: 
  Country: None (occurrence: None)
  Receive Date: 20060124
  Receipt Date: 20051005
  Transmission Date: 20060701
  Serious: Yes (Hospitalization)
  Sender: FDA-Public Use
  Company Number: US-MERCK-0510USA05475

PATIENT
  Age: 76 Year
  Sex: Male
  Weight: 96 kg

DRUGS (4)
  1. VIOXX [Suspect]
     Indication: SPONDYLITIS
     Route: 048
     Dates: start: 19990501
  2. COUMADIN [Concomitant]
     Route: 065
  3. ZOCOR [Concomitant]
     Route: 065
  4. FLOMAX (MORNIFLUMATE) [Concomitant]
     Route: 065

REACTIONS (11)
  - CEREBROVASCULAR ACCIDENT [None]
  - CONTUSION [None]
  - EYE EXCISION [None]
  - FACIAL BONES FRACTURE [None]
  - HYPOTENSION [None]
  - LUNG INJURY [None]
  - PATELLA FRACTURE [None]
  - RIB FRACTURE [None]
  - ROAD TRAFFIC ACCIDENT [None]
  - SUPRAVENTRICULAR TACHYCARDIA [None]
  - WOUND [None]
